FAERS Safety Report 17067859 (Version 1)
Quarter: 2019Q4

REPORT INFORMATION
  Report Type: Spontaneous
  Country: US (occurrence: US)
  Receive Date: 20191122
  Receipt Date: 20191122
  Transmission Date: 20200122
  Serious: No
  Sender: FDA-Public Use
  Company Number: US-BAUSCH-BL-2019-060259

PATIENT
  Age: 84 Year
  Sex: Male
  Weight: 109 kg

DRUGS (3)
  1. CELEBREX [Concomitant]
     Active Substance: CELECOXIB
     Indication: ARTHRITIS
  2. FLUOROURACIL. [Suspect]
     Active Substance: FLUOROURACIL
     Indication: HYPERKERATOSIS
     Dosage: 1-2 TIMES A WEEK (ONCE EVERY COUPLE OF DAYS)
     Route: 061
     Dates: start: 20191021, end: 20191031
  3. FLUOROURACIL. [Suspect]
     Active Substance: FLUOROURACIL
     Dosage: 1-2 TIMES A WEEK (ONCE EVERY COUPLE OF DAYS)
     Route: 061
     Dates: start: 20191103

REACTIONS (5)
  - Erythema [Not Recovered/Not Resolved]
  - Product use issue [Unknown]
  - Drug ineffective [Unknown]
  - Rash [Not Recovered/Not Resolved]
  - Product prescribing error [Unknown]

NARRATIVE: CASE EVENT DATE: 20191021
